FAERS Safety Report 14456480 (Version 1)
Quarter: 2018Q1

REPORT INFORMATION
  Report Type: Spontaneous
  Country: US (occurrence: US)
  Receive Date: 20180130
  Receipt Date: 20180130
  Transmission Date: 20180509
  Serious: Yes (Other)
  Sender: FDA-Public Use
  Company Number: US-009507513-1801USA009337

PATIENT
  Sex: Female

DRUGS (1)
  1. JANUMET [Suspect]
     Active Substance: METFORMIN HYDROCHLORIDE\SITAGLIPTIN PHOSPHATE

REACTIONS (6)
  - Sepsis [Unknown]
  - Staphylococcal sepsis [Unknown]
  - Peripancreatic fluid collection [Unknown]
  - Pancreatectomy [Unknown]
  - Medical induction of coma [Unknown]
  - Pancreatitis [Unknown]

NARRATIVE: CASE EVENT DATE: 2011
